FAERS Safety Report 13377119 (Version 2)
Quarter: 2017Q1

REPORT INFORMATION
  Report Type: Spontaneous
  Country: US (occurrence: US)
  Receive Date: 20170328
  Receipt Date: 20170330
  Transmission Date: 20170429
  Serious: Yes (Life-Threatening, Other)
  Sender: FDA-Public Use
  Company Number: US-SA-2017SA048510

PATIENT
  Age: 58 Year
  Sex: Male

DRUGS (8)
  1. NOVOLOG [Concomitant]
     Active Substance: INSULIN ASPART
  2. SOLOSTAR [Suspect]
     Active Substance: DEVICE
     Indication: TYPE 1 DIABETES MELLITUS
  3. TOUJEO [Suspect]
     Active Substance: INSULIN GLARGINE
     Indication: TYPE 1 DIABETES MELLITUS
     Dosage: DOSE:18 UNIT(S)
     Route: 065
  4. SOLOSTAR [Concomitant]
     Active Substance: DEVICE
  5. TOUJEO [Suspect]
     Active Substance: INSULIN GLARGINE
     Indication: TYPE 1 DIABETES MELLITUS
     Dosage: DOSE:18 UNIT(S)
     Route: 065
  6. LANTUS SOLOSTAR [Concomitant]
     Active Substance: INSULIN GLARGINE
     Dosage: DOSE:20 UNIT(S)
  7. HUMALOG [Concomitant]
     Active Substance: INSULIN LISPRO
  8. SOLOSTAR [Suspect]
     Active Substance: DEVICE
     Indication: TYPE 1 DIABETES MELLITUS

REACTIONS (11)
  - Fatigue [Unknown]
  - Loss of consciousness [Unknown]
  - Drug administered in wrong device [Unknown]
  - Fall [Unknown]
  - Sluggishness [Unknown]
  - Upper-airway cough syndrome [Unknown]
  - Tooth injury [Unknown]
  - Facial bones fracture [Unknown]
  - Cough [Unknown]
  - Hypoglycaemia [Unknown]
  - Lip injury [Unknown]
